FAERS Safety Report 6640439-7 (Version None)
Quarter: 2010Q1

REPORT INFORMATION
  Report Type: 
  Country: None (occurrence: None)
  Receive Date: 20100318
  Receipt Date: 20100309
  Transmission Date: 20100710
  Serious: Yes (Other)
  Sender: FDA-Public Use
  Company Number: BR-PFIZER INC-2010030179

PATIENT
  Age: 52 Year
  Sex: Female
  Weight: 85 kg

DRUGS (5)
  1. CELEBRA [Suspect]
     Indication: BURSITIS
     Dosage: 200 MG, EVERY 12 HOURS
     Route: 048
     Dates: start: 20100220, end: 20100301
  2. CELEBRA [Suspect]
     Indication: TENDONITIS
  3. LYRICA [Suspect]
     Dosage: 75 MG, EVERY 12 HOURS
     Route: 048
     Dates: start: 20100308
  4. ENALAPRIL MALEATE [Concomitant]
     Indication: BLOOD PRESSURE MANAGEMENT
     Dosage: 10 MG, UNK
  5. CLORANA [Concomitant]
     Dosage: UNK

REACTIONS (3)
  - DRUG INEFFECTIVE [None]
  - LIP SWELLING [None]
  - SLUGGISHNESS [None]
